FAERS Safety Report 10031635 (Version 2)
Quarter: 2014Q1

REPORT INFORMATION
  Report Type: Spontaneous
  Country: BR (occurrence: BR)
  Receive Date: 20140324
  Receipt Date: 20140324
  Transmission Date: 20141002
  Serious: Yes (Death)
  Sender: FDA-Public Use
  Company Number: BR-PFIZER INC-2012096474

PATIENT
  Age: 52 Year
  Sex: Male

DRUGS (1)
  1. SUTENT [Suspect]
     Indication: RENAL CELL CARCINOMA
     Dosage: 50 MG, CYCLIC (CYCLE 4 X 2)
     Route: 048
     Dates: start: 20120411

REACTIONS (4)
  - Death [Fatal]
  - Aphthous stomatitis [Unknown]
  - Fatigue [Unknown]
  - Nausea [Not Recovered/Not Resolved]
